FAERS Safety Report 11615625 (Version 1)
Quarter: 2015Q4

REPORT INFORMATION
  Report Type: Spontaneous
  Country: US (occurrence: US)
  Receive Date: 20151009
  Receipt Date: 20151009
  Transmission Date: 20160304
  Serious: Yes (Hospitalization, Other)
  Sender: FDA-Public Use
  Company Number: US-ACTAVIS-2015-21379

PATIENT
  Age: 62 Year
  Sex: Female

DRUGS (1)
  1. METRONIDAZOLE (WATSON LABORATORIES) [Suspect]
     Active Substance: METRONIDAZOLE
     Indication: CLOSTRIDIUM DIFFICILE COLITIS
     Dosage: 500 MG, TID
     Route: 065

REACTIONS (2)
  - Incorrect drug administration duration [Recovered/Resolved]
  - Toxic encephalopathy [Recovered/Resolved]
